FAERS Safety Report 9415783 (Version 2)
Quarter: 2013Q3

REPORT INFORMATION
  Report Type: Report from Study
  Country: BR (occurrence: BR)
  Receive Date: 20130724
  Receipt Date: 20130812
  Transmission Date: 20140515
  Serious: Yes (Hospitalization)
  Sender: FDA-Public Use
  Company Number: BR-ROCHE-1252313

PATIENT
  Age: 76 Year
  Sex: Male
  Weight: 94 kg

DRUGS (4)
  1. ACTEMRA [Suspect]
     Indication: RHEUMATOID ARTHRITIS
     Route: 065
     Dates: start: 20130221
  2. ARCOXIA [Concomitant]
     Indication: RHEUMATOID ARTHRITIS
  3. COUMADIN [Concomitant]
     Route: 065
  4. SELOZOK [Concomitant]
     Indication: ARRHYTHMIA

REACTIONS (1)
  - Ischaemic stroke [Recovered/Resolved]
